FAERS Safety Report 5965305-1 (Version None)
Quarter: 2008Q4

REPORT INFORMATION
  Report Type: 
  Country: None (occurrence: None)
  Receive Date: 20081125
  Receipt Date: 20081113
  Transmission Date: 20090506
  Serious: Yes (Other)
  Sender: FDA-Public Use
  Company Number: US-ROCHE-596909

PATIENT
  Sex: Male

DRUGS (1)
  1. CELLCEPT [Suspect]
     Indication: GOODPASTURE'S SYNDROME
     Route: 065

REACTIONS (2)
  - ARTHRALGIA [None]
  - JOINT EFFUSION [None]
